FAERS Safety Report 24225988 (Version 1)
Quarter: 2024Q3

REPORT INFORMATION
  Report Type: Report from Study
  Country: HK (occurrence: HK)
  Receive Date: 20240820
  Receipt Date: 20240820
  Transmission Date: 20241017
  Serious: Yes (Other)
  Sender: SANOFI AVENTIS
  Company Number: HK-SA-2024SA238846

PATIENT

DRUGS (8)
  1. LEFLUNOMIDE [Suspect]
     Active Substance: LEFLUNOMIDE
     Indication: Systemic lupus erythematosus
     Dosage: 100 MG, QD, LOADING DOSE
     Route: 048
  2. LEFLUNOMIDE [Suspect]
     Active Substance: LEFLUNOMIDE
     Dosage: 20 MG, QD
     Route: 048
  3. PREDNISOLONE [Concomitant]
     Active Substance: PREDNISOLONE
     Indication: Systemic lupus erythematosus
     Dosage: MEAN DOSE OF 10.6 + 4.8 MG/DAY
  4. PREDNISOLONE [Concomitant]
     Active Substance: PREDNISOLONE
     Dosage: 15 MG
  5. PREDNISOLONE [Concomitant]
     Active Substance: PREDNISOLONE
     Dosage: TAPERED BY 5 MG EVERY FOUR WEEKS UNTIL 10 MG/DAY
  6. PREDNISOLONE [Concomitant]
     Active Substance: PREDNISOLONE
     Dosage: FURTHER TAPERING BY 2.5 MG EVERY FOUR WEEKS UNTIL 5 MG/DAY
  7. PREDNISOLONE [Concomitant]
     Active Substance: PREDNISOLONE
     Dosage: FURTHER TAPERING BY 2.5 MG EVERY FOUR WEEKS UNTIL 5 MG/DAY
  8. HYDROXYCHLOROQUINE [Concomitant]
     Active Substance: HYDROXYCHLOROQUINE
     Indication: Systemic lupus erythematosus
     Dosage: UNK

REACTIONS (2)
  - Leukopenia [Recovered/Resolved]
  - Off label use [Recovered/Resolved]
